FAERS Safety Report 24569349 (Version 2)
Quarter: 2024Q4

REPORT INFORMATION
  Report Type: Spontaneous
  Country: US (occurrence: US)
  Receive Date: 20241031
  Receipt Date: 20241125
  Transmission Date: 20250114
  Serious: Yes (Other)
  Sender: PFIZER
  Company Number: US-PFIZER INC-202400289052

PATIENT
  Age: 70 Year
  Sex: Female

DRUGS (1)
  1. IBRANCE [Suspect]
     Active Substance: PALBOCICLIB
     Indication: Breast cancer female
     Dosage: 125 MGS DAILY, 3 WEEKS ON AND 7 DAYS OFF/ TAKE WITH FOOD, 21 DAYS ON 7 DAYS OFF
     Route: 048

REACTIONS (1)
  - Foot operation [Unknown]
